FAERS Safety Report 5814411-0 (Version None)
Quarter: 2008Q3

REPORT INFORMATION
  Report Type: 
  Country: None (occurrence: None)
  Receive Date: 20080718
  Receipt Date: 20080710
  Transmission Date: 20090109
  Serious: Yes (Other)
  Sender: FDA-Public Use
  Company Number: AU-JNJFOC-20080702448

PATIENT
  Sex: Male
  Weight: 29 kg

DRUGS (1)
  1. CONCERTA [Suspect]
     Indication: ABNORMAL BEHAVIOUR
     Route: 048

REACTIONS (4)
  - ANOREXIA [None]
  - INSOMNIA [None]
  - PSYCHOTIC DISORDER [None]
  - SKIN LESION [None]
